FAERS Safety Report 18203552 (Version 2)
Quarter: 2020Q3

REPORT INFORMATION
  Report Type: Report from Study
  Country: ES (occurrence: ES)
  Receive Date: 20200827
  Receipt Date: 20200916
  Transmission Date: 20201103
  Serious: Yes (Hospitalization, Other)
  Sender: FDA-Public Use
  Company Number: ES-AMGEN-ESPCT2020136718

PATIENT
  Age: 77 Year
  Sex: Male
  Weight: 64.7 kg

DRUGS (21)
  1. DOXYCYCLIN [DOXYCYCLINE] [Concomitant]
     Active Substance: DOXYCYCLINE
     Indication: RASH
     Dosage: 100 MILLIGRAM, QD
     Route: 048
     Dates: start: 20200505
  2. CLINDAMYCIN. [Concomitant]
     Active Substance: CLINDAMYCIN
     Indication: ACNE
     Dosage: UNK (OD AS NEEDED)
     Route: 061
  3. BEVACIZUMAB. [Suspect]
     Active Substance: BEVACIZUMAB
     Indication: COLORECTAL CANCER METASTATIC
     Dosage: 300 MILLIGRAM
     Route: 042
     Dates: start: 20191112, end: 20200102
  4. LEUCOVORIN [FOLINIC ACID] [Suspect]
     Active Substance: LEUCOVORIN
     Dosage: 720 MILLIGRAM, Q2WK
     Route: 042
     Dates: start: 20200505
  5. OLMESARTAN [Concomitant]
     Active Substance: OLMESARTAN
     Indication: PROPHYLAXIS
     Dosage: 10 MILLIGRAM, QD
     Route: 048
     Dates: start: 20200203
  6. METOCLOPRAMIDE HYDROCHLORIDE. [Concomitant]
     Active Substance: METOCLOPRAMIDE HYDROCHLORIDE
     Indication: PROPHYLAXIS OF NAUSEA AND VOMITING
     Dosage: 1 DOSAGE FORM, Q8H (AS NEEDED)
  7. LEUCOVORIN [FOLINIC ACID] [Suspect]
     Active Substance: LEUCOVORIN
     Indication: COLORECTAL CANCER METASTATIC
     Dosage: 690 MILLIGRAM, Q2WK
     Route: 042
     Dates: start: 20191112, end: 20200102
  8. DEXAMETHASONE. [Concomitant]
     Active Substance: DEXAMETHASONE
     Indication: PROPHYLAXIS
     Dosage: 8 MILLIGRAM, QD
     Route: 048
     Dates: start: 20200505
  9. 5 FU [Suspect]
     Active Substance: FLUOROURACIL
     Indication: COLORECTAL CANCER METASTATIC
     Dosage: 4100 MILLIGRAM, Q2WK
     Route: 041
     Dates: start: 20191112, end: 20200102
  10. 5 FU [Suspect]
     Active Substance: FLUOROURACIL
     Dosage: 580 MILLIGRAM, Q2WK
     Route: 040
     Dates: start: 20200505
  11. GIBITER EASYHALER [Concomitant]
     Active Substance: BUDESONIDE\FORMOTEROL FUMARATE DIHYDRATE
     Dosage: UNK
  12. OXALIPLATIN. [Suspect]
     Active Substance: OXALIPLATIN
     Indication: COLORECTAL CANCER METASTATIC
     Dosage: 150 MILLIGRAM, Q2WK
     Route: 042
     Dates: start: 20191112, end: 20200102
  13. OMEPRAZOLE. [Concomitant]
     Active Substance: OMEPRAZOLE
     Indication: PROPHYLAXIS
     Dosage: 20 MILLIGRAM, QD
     Route: 048
  14. LOPERAMIDE [Concomitant]
     Active Substance: LOPERAMIDE
     Indication: DIARRHOEA
     Dosage: UNK
  15. METOCLOPRAMIDE HYDROCHLORIDE. [Concomitant]
     Active Substance: METOCLOPRAMIDE HYDROCHLORIDE
     Indication: VOMITING
  16. PREDNICARBATE. [Concomitant]
     Active Substance: PREDNICARBATE
     Indication: ACNE
     Dosage: UNK (OD AS NEEDED)
     Route: 061
  17. PANITUMUMAB [Suspect]
     Active Substance: PANITUMUMAB
     Indication: COLORECTAL CANCER METASTATIC
     Dosage: 320 MILLIGRAM, Q2WK
     Route: 042
     Dates: start: 20200505
  18. IRINOTECAN [Suspect]
     Active Substance: IRINOTECAN
     Indication: COLORECTAL CANCER METASTATIC
     Dosage: 260 MILLIGRAM, Q2WK
     Route: 042
     Dates: start: 20200505
  19. 5 FU [Suspect]
     Active Substance: FLUOROURACIL
     Dosage: 690 MILLIGRAM, Q2WK
     Route: 040
     Dates: start: 20191112, end: 20200102
  20. 5 FU [Suspect]
     Active Substance: FLUOROURACIL
     Dosage: 3500 MILLIGRAM, Q2WK
     Route: 041
     Dates: start: 20200505
  21. METOCLOPRAMIDE HYDROCHLORIDE. [Concomitant]
     Active Substance: METOCLOPRAMIDE HYDROCHLORIDE
     Indication: NAUSEA
     Dosage: 10 MILLIGRAM, BID
     Route: 042
     Dates: start: 20200810, end: 20200817

REACTIONS (1)
  - Acute kidney injury [Recovered/Resolved]

NARRATIVE: CASE EVENT DATE: 20200810
